FAERS Safety Report 22647038 (Version 1)
Quarter: 2023Q2

REPORT INFORMATION
  Report Type: Spontaneous
  Country: US (occurrence: US)
  Receive Date: 20230627
  Receipt Date: 20230627
  Transmission Date: 20230721
  Serious: No
  Sender: FDA-Public Use
  Company Number: US-PERRIGO-23US006767

PATIENT
  Age: 61 Year
  Sex: Male
  Weight: 92.971 kg

DRUGS (5)
  1. NASONEX [Suspect]
     Active Substance: MOMETASONE FUROATE
     Indication: Sneezing
     Dosage: 100 MCG IN EACH NOSTRIL, BID
     Route: 045
     Dates: start: 20230524, end: 20230607
  2. NASONEX [Suspect]
     Active Substance: MOMETASONE FUROATE
     Indication: Lacrimation increased
  3. NASONEX [Suspect]
     Active Substance: MOMETASONE FUROATE
     Indication: Nasal congestion
  4. ASPIRIN [Concomitant]
     Active Substance: ASPIRIN
     Indication: Headache
     Dosage: PRN
     Route: 065
  5. ASPIRIN [Concomitant]
     Active Substance: ASPIRIN
     Indication: Back pain

REACTIONS (3)
  - Drug ineffective [Unknown]
  - Inappropriate schedule of product administration [Unknown]
  - Off label use [Unknown]

NARRATIVE: CASE EVENT DATE: 20230524
